FAERS Safety Report 5781842-7 (Version None)
Quarter: 2008Q2

REPORT INFORMATION
  Report Type: 
  Country: None (occurrence: None)
  Receive Date: 20080623
  Receipt Date: 20080304
  Transmission Date: 20081010
  Serious: No
  Sender: FDA-Public Use
  Company Number: US-ASTRAZENECA-2008UW02029

PATIENT
  Age: 70 Year
  Sex: Female
  Weight: 106.8 kg

DRUGS (4)
  1. RHINOCORT [Suspect]
     Indication: NASAL DISCOMFORT
     Dosage: 32 UG 120 METER SPRAY/UNIT/1 SPRAY EACH NOSTRIL
     Route: 045
     Dates: start: 20080122, end: 20080125
  2. NEXIUM [Concomitant]
     Indication: REFLUX OESOPHAGITIS
  3. AMITRIPTYLINE HCL [Concomitant]
     Indication: INSOMNIA
  4. NADOLOL [Concomitant]
     Indication: HYPERTENSION

REACTIONS (3)
  - COUGH [None]
  - NASAL DISCOMFORT [None]
  - WHEEZING [None]
